FAERS Safety Report 17661529 (Version 1)
Quarter: 2020Q2

REPORT INFORMATION
  Report Type: Spontaneous
  Country: US (occurrence: US)
  Receive Date: 20200413
  Receipt Date: 20200413
  Transmission Date: 20200713
  Serious: No
  Sender: FDA-Public Use
  Company Number: US-BIOGEN-2019BI00754067

PATIENT
  Sex: Female

DRUGS (1)
  1. TYSABRI [Suspect]
     Active Substance: NATALIZUMAB
     Indication: MULTIPLE SCLEROSIS
     Dosage: INFUSED OVER 1 HOUR
     Route: 042
     Dates: start: 20180115, end: 20190731

REACTIONS (10)
  - Blood pressure increased [Unknown]
  - Respiratory rate increased [Recovered/Resolved]
  - Spinal pain [Recovered/Resolved]
  - Hypertension [Recovered/Resolved]
  - Cold sweat [Unknown]
  - Multiple sclerosis relapse [Recovered/Resolved]
  - Heart rate increased [Unknown]
  - Loss of consciousness [Recovered/Resolved]
  - Back pain [Recovered/Resolved]
  - Muscle spasms [Recovered/Resolved]
